FAERS Safety Report 8564082-8 (Version None)
Quarter: 2012Q3

REPORT INFORMATION
  Report Type: 
  Country: None (occurrence: None)
  Receive Date: 20120803
  Receipt Date: 20120725
  Transmission Date: 20120928
  Serious: Yes (Hospitalization, Disabling, Other)
  Sender: FDA-Public Use
  Company Number: US-BAYER-201022369NA

PATIENT
  Age: 43 Year
  Sex: Female
  Weight: 72.562 kg

DRUGS (10)
  1. SINGULAIR [Concomitant]
     Indication: MULTIPLE ALLERGIES
  2. MOTRIN [Concomitant]
     Indication: PAIN
     Dosage: UNK
     Dates: start: 20060801
  3. PROTONIX [Concomitant]
     Indication: EROSIVE OESOPHAGITIS
     Dosage: UNK
     Dates: start: 20070201, end: 20091201
  4. AVANDIA [Concomitant]
     Indication: DIABETES MELLITUS
     Dosage: UNK
     Dates: start: 20040101, end: 20080101
  5. ALTACE [Concomitant]
     Indication: HYPERTENSION
     Dosage: UNK
     Dates: start: 20040101, end: 20080101
  6. PROAIR HFA [Concomitant]
     Indication: ASTHMA
  7. SINGULAIR [Concomitant]
     Indication: ASTHMA
     Dosage: UNK
     Dates: start: 20040101
  8. YAZ [Suspect]
     Dosage: UNK
     Route: 048
     Dates: start: 20061115, end: 20080510
  9. FLUTICASONE PROPIONATE [Concomitant]
     Indication: ASTHMA
  10. XOPENEX [Concomitant]
     Indication: ASTHMA

REACTIONS (3)
  - INJURY [None]
  - CEREBROVASCULAR ACCIDENT [None]
  - DEFORMITY [None]
